FAERS Safety Report 22384309 (Version 5)
Quarter: 2024Q1

REPORT INFORMATION
  Report Type: Spontaneous
  Country: GB (occurrence: GB)
  Receive Date: 20230530
  Receipt Date: 20240201
  Transmission Date: 20240410
  Serious: Yes (Hospitalization)
  Sender: FDA-Public Use
  Company Number: GB-MYLANLABS-2022M1039494

PATIENT
  Age: 45 Year
  Sex: Female

DRUGS (1)
  1. CLOZARIL [Suspect]
     Active Substance: CLOZAPINE
     Indication: Schizophrenia
     Dosage: UNK
     Route: 048
     Dates: start: 20010701

REACTIONS (2)
  - Anaemia [Recovered/Resolved]
  - Heavy menstrual bleeding [Unknown]

NARRATIVE: CASE EVENT DATE: 20220524
